FAERS Safety Report 4758639-X (Version None)
Quarter: 2005Q3

REPORT INFORMATION
  Report Type: 
  Country: None (occurrence: None)
  Receive Date: 20050901
  Receipt Date: 20050727
  Transmission Date: 20060218
  Serious: Yes (Hospitalization)
  Sender: FDA-Public Use
  Company Number: HQWYE592029JUL05

PATIENT
  Sex: Female
  Weight: 38.6 kg

DRUGS (10)
  1. ENBREL [Suspect]
     Indication: JUVENILE ARTHRITIS
     Route: 058
     Dates: start: 20040219
  2. PREDNISOLONE [Concomitant]
     Indication: JUVENILE ARTHRITIS
     Route: 048
     Dates: start: 20040626
  3. NAPROXEN SODIUM [Concomitant]
     Indication: JUVENILE ARTHRITIS
     Route: 048
  4. KETOPROFEN [Concomitant]
     Indication: JUVENILE ARTHRITIS
     Dosage: AS NEEDED
     Route: 061
  5. BETAMETHASONE [Concomitant]
     Indication: UVEITIS
     Dosage: AS NEEDED
     Route: 047
  6. ATROPINE SULFATE [Concomitant]
     Indication: UVEITIS
     Dosage: AS NEEDED
     Route: 047
     Dates: start: 20040315
  7. ALENDRONATE SODIUM [Concomitant]
     Indication: OSTEOPOROSIS
     Route: 048
     Dates: start: 20050501
  8. DICLOFENAC SODIUM [Concomitant]
     Indication: UVEITIS
     Dosage: AS NEEDED
     Route: 047
     Dates: start: 20041108
  9. PREDONINE [Concomitant]
     Indication: UVEITIS
     Dosage: AS NEEDED
     Route: 047
     Dates: start: 20041108
  10. MYDRIN P [Concomitant]
     Indication: UVEITIS
     Dosage: AS NEEDED
     Route: 047
     Dates: start: 20041108

REACTIONS (2)
  - CONDITION AGGRAVATED [None]
  - JUVENILE ARTHRITIS [None]
